FAERS Safety Report 6004047-3 (Version None)
Quarter: 2008Q4

REPORT INFORMATION
  Report Type: 
  Country: None (occurrence: None)
  Receive Date: 20081216
  Receipt Date: 20081212
  Transmission Date: 20090506
  Serious: Yes (Hospitalization)
  Sender: FDA-Public Use
  Company Number: B0545322A

PATIENT
  Age: 72 Year
  Sex: Female
  Weight: 43 kg

DRUGS (16)
  1. VALTREX [Suspect]
     Indication: HERPES ZOSTER
     Route: 048
     Dates: start: 20081101, end: 20081101
  2. VALTREX [Suspect]
     Dosage: 500MG PER DAY
     Route: 048
     Dates: start: 20081102, end: 20081102
  3. CYANOCOBALAMIN [Concomitant]
     Dosage: 1500MCG PER DAY
     Route: 048
     Dates: start: 20081101
  4. MEVALOTIN [Concomitant]
     Dosage: 5MG PER DAY
     Route: 048
  5. WARFARIN SODIUM [Concomitant]
     Dosage: 2.5MG PER DAY
     Route: 048
  6. BLOPRESS [Concomitant]
     Dosage: 4MG PER DAY
     Route: 048
  7. ASPIRIN [Concomitant]
     Dosage: 100MG PER DAY
     Route: 048
  8. FUROSEMIDE [Concomitant]
     Route: 048
  9. ZYLORIC [Concomitant]
     Dosage: 200MG PER DAY
     Route: 048
  10. SELOKEN [Concomitant]
     Dosage: 40MG PER DAY
     Route: 048
  11. BASEN [Concomitant]
     Dosage: .6MG PER DAY
     Route: 048
  12. RENAGEL [Concomitant]
     Dosage: 2250MG PER DAY
     Route: 048
  13. CALTAN [Concomitant]
     Dosage: 1500MG PER DAY
     Route: 048
  14. SELBEX [Concomitant]
     Dosage: 150MG PER DAY
     Route: 048
  15. SELOKEN [Concomitant]
     Dosage: 60MG PER DAY
     Route: 048
  16. FRANDOL S [Concomitant]
     Route: 062

REACTIONS (3)
  - ALTERED STATE OF CONSCIOUSNESS [None]
  - HALLUCINATION [None]
  - OVERDOSE [None]
